FAERS Safety Report 24412507 (Version 1)
Quarter: 2024Q4

REPORT INFORMATION
  Report Type: Spontaneous
  Country: US (occurrence: US)
  Receive Date: 20241008
  Receipt Date: 20241008
  Transmission Date: 20250115
  Serious: No
  Sender: VERONA PHARMA
  Company Number: US-VERONA PHARMA-VER-000241

PATIENT
  Sex: Male

DRUGS (1)
  1. OHTUVAYRE [Suspect]
     Active Substance: ENSIFENTRINE
     Indication: Chronic obstructive pulmonary disease

REACTIONS (2)
  - Blood pressure abnormal [Unknown]
  - Inappropriate schedule of product administration [Unknown]
